FAERS Safety Report 10727667 (Version 1)
Quarter: 2015Q1

REPORT INFORMATION
  Report Type: Spontaneous
  Country: DK (occurrence: FR)
  Receive Date: 20150121
  Receipt Date: 20150121
  Transmission Date: 20150721
  Serious: No
  Sender: FDA-Public Use
  Company Number: FR-FRI-1000073723

PATIENT
  Sex: Female

DRUGS (4)
  1. CITALOPRAM [Suspect]
     Active Substance: CITALOPRAM HYDROBROMIDE
     Indication: BURNOUT SYNDROME
     Route: 065
  2. ANXIOLYTICS [Suspect]
     Active Substance: UNSPECIFIED INGREDIENT
     Route: 065
  3. THERALENE [Suspect]
     Active Substance: TRIMEPRAZINE
     Indication: BURNOUT SYNDROME
     Route: 065
  4. ANXIOLYTICS [Suspect]
     Active Substance: UNSPECIFIED INGREDIENT
     Indication: BURNOUT SYNDROME
     Route: 065

REACTIONS (2)
  - Suicide attempt [Recovered/Resolved]
  - Homicidal ideation [Recovered/Resolved]

NARRATIVE: CASE EVENT DATE: 2008
